FAERS Safety Report 6036576-0 (Version None)
Quarter: 2009Q1

REPORT INFORMATION
  Report Type: 
  Country: None (occurrence: None)
  Receive Date: 20090112
  Receipt Date: 20081231
  Transmission Date: 20090719
  Serious: Yes (Death)
  Sender: FDA-Public Use
  Company Number: 2008AP002277

PATIENT
  Age: 75 Year
  Sex: Male

DRUGS (2)
  1. CARBAMAZEPINE [Suspect]
     Indication: COMPLEX PARTIAL SEIZURES
     Dosage: 1200 MG;
  2. VALPROATE SODIUM [Suspect]
     Indication: COMPLEX PARTIAL SEIZURES
     Dosage: 1500 MG;

REACTIONS (1)
  - MYOCARDIAL INFARCTION [None]
